FAERS Safety Report 17133661 (Version 1)
Quarter: 2019Q4

REPORT INFORMATION
  Report Type: Spontaneous
  Country: US (occurrence: US)
  Receive Date: 20191209
  Receipt Date: 20191209
  Transmission Date: 20200122
  Serious: Yes (Hospitalization)
  Sender: FDA-Public Use
  Company Number: None

PATIENT
  Age: 61 Year
  Sex: Female

DRUGS (1)
  1. IBRANCE [Suspect]
     Active Substance: PALBOCICLIB
     Route: 048
     Dates: start: 20190815

REACTIONS (5)
  - Nausea [None]
  - Skin ulcer [None]
  - Nail disorder [None]
  - Alopecia [None]
  - Small intestinal obstruction [None]

NARRATIVE: CASE EVENT DATE: 20190401
